FAERS Safety Report 6077605-8 (Version None)
Quarter: 2009Q1

REPORT INFORMATION
  Report Type: 
  Country: None (occurrence: None)
  Receive Date: 20090213
  Receipt Date: 20090206
  Transmission Date: 20090719
  Serious: Yes (Death)
  Sender: FDA-Public Use
  Company Number: JP-ASTRAZENECA-2009AP01098

PATIENT
  Age: 23072 Day
  Sex: Male

DRUGS (21)
  1. SEROQUEL [Suspect]
     Indication: RESTLESSNESS
     Route: 048
     Dates: start: 20081117, end: 20081124
  2. SEROQUEL [Suspect]
     Indication: SOMATOFORM DISORDER
     Route: 048
     Dates: start: 20081117, end: 20081124
  3. DEPAS [Suspect]
     Route: 048
     Dates: start: 20081107, end: 20081116
  4. RISPERDAL [Suspect]
     Indication: RESTLESSNESS
     Route: 048
     Dates: start: 20081107
  5. RISPERDAL [Suspect]
     Route: 048
     Dates: end: 20081124
  6. DAIKENTYUTO [Suspect]
     Route: 048
     Dates: start: 20081031, end: 20081124
  7. FOIPAN [Concomitant]
  8. GANATON [Concomitant]
  9. TAKEPRON [Concomitant]
  10. DIOVAN [Concomitant]
  11. GASMOTIN [Concomitant]
  12. LACTULOSE [Concomitant]
  13. ZYPREXA [Concomitant]
  14. ROHYPNOL [Concomitant]
  15. LENDORMIN [Concomitant]
  16. RIZE [Concomitant]
  17. ADALAT [Concomitant]
  18. NOCBIN [Concomitant]
  19. STRONGER NEO-MINOPHAGEN [Concomitant]
  20. LEPETAN [Concomitant]
  21. GASTER [Concomitant]

REACTIONS (1)
  - LIVER DISORDER [None]
